FAERS Safety Report 15009871 (Version 2)
Quarter: 2018Q2

REPORT INFORMATION
  Report Type: Spontaneous
  Country: BR (occurrence: BR)
  Receive Date: 20180614
  Receipt Date: 20180620
  Transmission Date: 20180711
  Serious: Yes (Hospitalization)
  Sender: FDA-Public Use
  Company Number: BR-B.I. PHARMACEUTICALS,INC./RIDGEFIELD-2018-BI-030160

PATIENT
  Sex: Male
  Weight: 180 kg

DRUGS (5)
  1. BENICAR HCT [Concomitant]
     Active Substance: HYDROCHLOROTHIAZIDE\OLMESARTAN MEDOXOMIL
     Indication: HYPERTENSION
     Dosage: STRENGTH AND DOSE: 40/25 MILLIGRAM
     Route: 048
     Dates: start: 2003
  2. AMLODIPINE [Concomitant]
     Active Substance: AMLODIPINE BESYLATE
     Indication: HYPERTENSION
     Route: 048
     Dates: start: 2003
  3. ATENSINA [Suspect]
     Active Substance: CLONIDINE
     Indication: HYPERTENSION
     Route: 048
     Dates: start: 2003, end: 201803
  4. ATENOLOL. [Concomitant]
     Active Substance: ATENOLOL
     Indication: HYPERTENSION
     Route: 048
     Dates: start: 2003
  5. ATENSINA [Suspect]
     Active Substance: CLONIDINE
     Route: 048
     Dates: start: 201804

REACTIONS (5)
  - Meniscus injury [Recovered/Resolved]
  - Diabetes mellitus [Not Recovered/Not Resolved]
  - Asthenia [Recovered/Resolved]
  - Somnolence [Not Recovered/Not Resolved]
  - Hiatus hernia [Recovered/Resolved]

NARRATIVE: CASE EVENT DATE: 2003
